FAERS Safety Report 4395730-4 (Version None)
Quarter: 2004Q3

REPORT INFORMATION
  Report Type: 
  Country: None (occurrence: None)
  Receive Date: 20040708
  Receipt Date: 20040623
  Transmission Date: 20050211
  Serious: Yes (Hospitalization, Other)
  Sender: FDA-Public Use
  Company Number: US-SHR-04-021859

PATIENT
  Age: 49 Year
  Sex: Male

DRUGS (11)
  1. CAMPATH [Suspect]
     Indication: UNRELATED DONOR BONE MARROW TRANSPLANTATION THERAPY
     Dosage: 10 MG/D, D-7 TO 3 (TOTAL 60MG)
     Dates: start: 20030101
  2. FLUDARA [Suspect]
     Indication: UNRELATED DONOR BONE MARROW TRANSPLANTATION THERAPY
     Dosage: 25 MG/MI2/D, DAY-5 TO (125MG/M2, INTRAVENOUS)
     Route: 042
  3. GM-CSF(SARGRAMOSTIM) INJECTION [Suspect]
     Indication: UNRELATED DONOR BONE MARROW TRANSPLANTATION THERAPY
     Dosage: 250 UG, ON DAY +3 TO STABIL ANC, SUBCUTANEOUS
     Route: 058
     Dates: start: 20031102, end: 20031113
  4. CYTOXAN [Suspect]
     Indication: UNRELATED DONOR BONE MARROW TRANSPLANTATION THERAPY
     Dosage: 45 MG/KG/DAY, DAY-4 TO-3 (90 MG/KG)
  5. CYCLOSPORINE [Suspect]
     Indication: PROPHYLAXIS
     Dates: start: 20031029, end: 20040106
  6. MESNA [Concomitant]
  7. CASPOFUNGIN (CASPOFUNGIN) [Concomitant]
  8. ACYCLOVIR [Concomitant]
  9. BACTRIM DS [Concomitant]
  10. MG-OX (MAGNESIUM OXIDE) [Concomitant]
  11. MULTIVITAMINS (RETINOL, PANTHENOL) [Concomitant]

REACTIONS (19)
  - BK VIRUS INFECTION [None]
  - BONE MARROW DEPRESSION [None]
  - BRONCHOPULMONARY ASPERGILLOSIS [None]
  - CATHETER RELATED INFECTION [None]
  - COMPUTERISED TOMOGRAM THORAX ABNORMAL [None]
  - DRUG TOXICITY [None]
  - EMPHYSEMA [None]
  - FEBRILE NEUTROPENIA [None]
  - INFLUENZA [None]
  - ORAL SOFT TISSUE DISORDER [None]
  - PNEUMOCYSTIS CARINII INFECTION [None]
  - PNEUMONIA [None]
  - RASH FOLLICULAR [None]
  - RASH PRURITIC [None]
  - RENAL FAILURE ACUTE [None]
  - RENAL TUBULAR NECROSIS [None]
  - SKIN DESQUAMATION [None]
  - STAPHYLOCOCCAL BACTERAEMIA [None]
  - UPPER RESPIRATORY TRACT INFECTION [None]
